FAERS Safety Report 5806430-5 (Version None)
Quarter: 2008Q3

REPORT INFORMATION
  Report Type: 
  Country: None (occurrence: None)
  Receive Date: 20080710
  Receipt Date: 20080617
  Transmission Date: 20090109
  Serious: No
  Sender: FDA-Public Use
  Company Number: IE-ELI_LILLY_AND_COMPANY-IE200807001312

PATIENT
  Age: 67 Year
  Sex: Female

DRUGS (1)
  1. CYMBALTA [Suspect]
     Dosage: 30 MG, UNK
     Route: 065
     Dates: start: 20080124, end: 20080211

REACTIONS (4)
  - CHROMATURIA [None]
  - INFLUENZA LIKE ILLNESS [None]
  - JAUNDICE [None]
  - JAUNDICE CHOLESTATIC [None]
